FAERS Safety Report 14542114 (Version 1)
Quarter: 2018Q1

REPORT INFORMATION
  Report Type: Spontaneous
  Country: FR (occurrence: FR)
  Receive Date: 20180216
  Receipt Date: 20180216
  Transmission Date: 20180509
  Serious: Yes (Life-Threatening, Hospitalization, Other)
  Sender: FDA-Public Use
  Company Number: FR-OTSUKA-DJ20115832

PATIENT
  Age: 40 Year
  Sex: Female
  Weight: 120 kg

DRUGS (5)
  1. ABILIFY [Suspect]
     Active Substance: ARIPIPRAZOLE
     Indication: BIPOLAR I DISORDER
     Dosage: 20 MG, UNK
     Route: 048
     Dates: start: 200912
  2. HALDOL [Suspect]
     Active Substance: HALOPERIDOL
     Indication: DELUSION
     Dosage: 15 MG, UNK
     Route: 048
  3. TEGRETOL [Suspect]
     Active Substance: CARBAMAZEPINE
     Indication: BIPOLAR I DISORDER
     Dosage: UNK
     Route: 048
  4. TERCIAN [Suspect]
     Active Substance: CYAMEMAZINE
     Indication: SLEEP DISORDER
     Dosage: 100 MG, UNK
     Route: 065
  5. TRANXENE [Concomitant]
     Active Substance: CLORAZEPATE DIPOTASSIUM
     Indication: ANXIETY
     Dosage: UNK
     Route: 065

REACTIONS (3)
  - Delusion [Not Recovered/Not Resolved]
  - Suicide attempt [Unknown]
  - Septic shock [Not Recovered/Not Resolved]

NARRATIVE: CASE EVENT DATE: 20110902
